FAERS Safety Report 4396291-6 (Version None)
Quarter: 2004Q3

REPORT INFORMATION
  Report Type: 
  Country: None (occurrence: None)
  Receive Date: 20040713
  Receipt Date: 20040616
  Transmission Date: 20050211
  Serious: Yes (Hospitalization)
  Sender: FDA-Public Use
  Company Number: US-GLAXOSMITHKLINE-A0514871A

PATIENT
  Age: 80 Year
  Sex: Female

DRUGS (11)
  1. REQUIP [Suspect]
     Indication: RESTLESS LEGS SYNDROME
     Route: 048
     Dates: start: 20031001, end: 20040301
  2. LEXAPRO [Concomitant]
  3. PLAVIX [Concomitant]
  4. DIGITEK [Concomitant]
  5. COZAAR [Concomitant]
  6. PRAVACHOL [Concomitant]
  7. COREG [Concomitant]
  8. LASIX [Concomitant]
  9. POTASSIUM [Concomitant]
  10. OXYGEN [Concomitant]
  11. VICODIN [Concomitant]
     Indication: RESTLESS LEGS SYNDROME

REACTIONS (15)
  - BALANCE DISORDER [None]
  - CEREBROVASCULAR DISORDER [None]
  - DEPRESSION [None]
  - DIZZINESS [None]
  - DRUG INEFFECTIVE [None]
  - DYSPNOEA [None]
  - ELECTROCARDIOGRAM CHANGE [None]
  - FATIGUE [None]
  - FEELING ABNORMAL [None]
  - GAIT DISTURBANCE [None]
  - NAUSEA [None]
  - OTITIS MEDIA [None]
  - STRESS SYMPTOMS [None]
  - SUFFOCATION FEELING [None]
  - SUICIDAL IDEATION [None]
